FAERS Safety Report 20309072 (Version 1)
Quarter: 2022Q1

REPORT INFORMATION
  Report Type: Spontaneous
  Country: US (occurrence: None)
  Receive Date: 20220106
  Receipt Date: 20220106
  Transmission Date: 20220424
  Serious: Yes (Other)
  Sender: FDA-Public Use
  Company Number: None

PATIENT
  Age: 75 Year
  Sex: Male

DRUGS (1)
  1. KISQALI [Suspect]
     Active Substance: RIBOCICLIB
     Dosage: 600MG DAILY PO X 21 DAYS THEN 7 DAYS O?
     Route: 048
     Dates: start: 20211224

REACTIONS (4)
  - Nausea [None]
  - Erythema [None]
  - Epistaxis [None]
  - Neutropenia [None]

NARRATIVE: CASE EVENT DATE: 20211201
